FAERS Safety Report 9960303 (Version 1)
Quarter: 2014Q1

REPORT INFORMATION
  Report Type: Spontaneous
  Country: CA (occurrence: CA)
  Receive Date: 20140305
  Receipt Date: 20140305
  Transmission Date: 20141002
  Serious: Yes (Hospitalization, Other)
  Sender: FDA-Public Use
  Company Number: CA-JNJFOC-20140217775

PATIENT
  Age: 87 Year
  Sex: Female
  Weight: 60 kg

DRUGS (21)
  1. XARELTO [Suspect]
     Indication: PRODUCT USED FOR UNKNOWN INDICATION
     Route: 048
  2. DOCUSATE SODIUM [Concomitant]
     Route: 065
  3. FERROUS SULPHATE [Concomitant]
     Route: 065
  4. FUCIDIN [Concomitant]
     Route: 065
  5. LUCENTIS [Concomitant]
     Route: 065
  6. ACIDOPHILUS [Concomitant]
     Route: 065
  7. ONDANSETRON [Concomitant]
     Route: 065
  8. PMS-GABAPENTIN [Concomitant]
     Route: 065
  9. PMS-OXYBUTYNIN [Concomitant]
     Route: 065
  10. SENNOSIDE [Concomitant]
     Route: 065
  11. SLOW-K [Concomitant]
     Route: 065
  12. DIGOXIN [Concomitant]
     Route: 065
  13. VITAMIN C [Concomitant]
     Route: 065
  14. VITAMIN D [Concomitant]
     Route: 065
  15. ZOPICLONE [Concomitant]
     Route: 065
  16. DILTIAZEM [Concomitant]
     Route: 065
  17. LATANOPROST [Concomitant]
     Route: 047
  18. APO FUROSEMIDE [Concomitant]
     Route: 065
  19. MAGNESIUM [Concomitant]
     Route: 065
  20. ACETAMINOPHEN [Concomitant]
     Route: 065
  21. ERYTHROMYCIN [Concomitant]
     Route: 065

REACTIONS (2)
  - Haemorrhage intracranial [Unknown]
  - Fall [Unknown]
